FAERS Safety Report 11586889 (Version 3)
Quarter: 2016Q1

REPORT INFORMATION
  Report Type: Spontaneous
  Country: US (occurrence: US)
  Receive Date: 20151001
  Receipt Date: 20160112
  Transmission Date: 20160525
  Serious: No
  Sender: FDA-Public Use
  Company Number: US-PFIZER INC-2015318547

PATIENT
  Age: 72 Year
  Sex: Female
  Weight: 70.2 kg

DRUGS (23)
  1. ZOLPIDEM [Concomitant]
     Active Substance: ZOLPIDEM\ZOLPIDEM TARTRATE
     Indication: SLEEP DISORDER
     Dosage: 5 MG, AS NEEDED (1 PILL NIGHTLY PRN SLEEP)
     Dates: start: 20151201
  2. LEVOTHYROXINE. [Concomitant]
     Active Substance: LEVOTHYROXINE
     Dosage: 125 ?G, 1X/DAY
     Route: 048
     Dates: start: 201201
  3. HYDROCODONE [Concomitant]
     Active Substance: HYDROCODONE
     Indication: PAIN
     Dosage: 5/325MG, 1 TABLET TWICE DAILY CAN TAKE UP TO 6 DAILY
     Route: 048
  4. INLYTA [Suspect]
     Active Substance: AXITINIB
     Indication: RENAL CANCER METASTATIC
     Dosage: 7 MG, 2X/DAY
     Route: 048
     Dates: start: 201506
  5. INLYTA [Suspect]
     Active Substance: AXITINIB
     Dosage: 5 MG, 2X/DAY
     Route: 048
     Dates: start: 20150920
  6. INLYTA [Suspect]
     Active Substance: AXITINIB
     Dosage: 2 MG, 2X/DAY
     Route: 048
     Dates: start: 20150726
  7. INLYTA [Suspect]
     Active Substance: AXITINIB
     Dosage: 10 MG, 2X/DAY
     Route: 048
  8. ZINC [Concomitant]
     Active Substance: ZINC\ZINC CHLORIDE
     Indication: NASOPHARYNGITIS
     Dosage: 50 MG, DAILY (1 PO Q DAY AT FIRST SIGN OF A COLD)
     Route: 048
     Dates: start: 20151207
  9. INLYTA [Suspect]
     Active Substance: AXITINIB
     Dosage: 5 MG, 2X/DAY(EVERY 12 HOURS)
     Route: 048
     Dates: start: 201506
  10. LOMOTIL [Concomitant]
     Active Substance: ATROPINE SULFATE\DIPHENOXYLATE HYDROCHLORIDE
     Indication: DIARRHOEA
     Dosage: UNK (TAKE 1-2 TABS PO QID)
     Route: 048
     Dates: start: 20150408
  11. INLYTA [Suspect]
     Active Substance: AXITINIB
     Dosage: UNK
     Dates: start: 201507
  12. CALCIUM [Concomitant]
     Active Substance: CALCIUM
     Dosage: 1200 MG, 1X/DAY
     Route: 048
     Dates: start: 201507
  13. XGEVA [Concomitant]
     Active Substance: DENOSUMAB
     Dosage: UNK
     Dates: start: 201507
  14. CALCIUM 600 + D3 PLUS MINERALS [Concomitant]
     Dosage: UNK UNK, 2X/DAY
     Route: 048
     Dates: start: 20150619
  15. COLACE [Concomitant]
     Active Substance: DOCUSATE SODIUM
     Dosage: UNK UNK, AS NEEDED
     Dates: start: 20150721
  16. HYDROCODONE BITARTRATE AND ACETAMINOPHEN [Concomitant]
     Active Substance: ACETAMINOPHEN\HYDROCODONE BITARTRATE
     Indication: PAIN
     Dosage: UNK, AS NEEDED (1-2 TABLETS PO Q 4-6 HRS PRN)
     Route: 048
     Dates: start: 20151104
  17. HYDROCODONE [Concomitant]
     Active Substance: HYDROCODONE
     Dosage: UNK, AS NEEDED
     Dates: start: 201508
  18. DEXAMETHASONE. [Concomitant]
     Active Substance: DEXAMETHASONE
     Dosage: 1 MG, 2X/DAY
     Route: 048
     Dates: start: 20151014
  19. INLYTA [Suspect]
     Active Substance: AXITINIB
     Dosage: 2 MG, 2X/DAY (EVERY 12 HOURS)
  20. LEVOTHYROXINE. [Concomitant]
     Active Substance: LEVOTHYROXINE
     Dosage: 75 UG, DAILY
     Dates: start: 20150923
  21. DIPHEN/ATROP [Concomitant]
     Active Substance: ATROPINE SULFATE\DIPHENOXYLATE
     Indication: DIARRHOEA
     Dosage: 2.5 MG, AS NEEDED (1-2 TABLETS PO 4 TIMES DAILY AS NEEDED)
     Route: 048
     Dates: start: 20150223
  22. LORAZEPAM. [Concomitant]
     Active Substance: LORAZEPAM
     Indication: ANXIETY
     Dosage: 0.5 MG, DAILY
     Route: 048
     Dates: start: 20150714
  23. LORAZEPAM. [Concomitant]
     Active Substance: LORAZEPAM
     Indication: SLEEP DISORDER

REACTIONS (4)
  - Neck pain [Recovered/Resolved]
  - Arthralgia [Not Recovered/Not Resolved]
  - Fatigue [Not Recovered/Not Resolved]
  - Asthenia [Not Recovered/Not Resolved]

NARRATIVE: CASE EVENT DATE: 201509
